FAERS Safety Report 9881452 (Version 1)
Quarter: 2014Q1

REPORT INFORMATION
  Report Type: Spontaneous
  Country: CA (occurrence: CA)
  Receive Date: 20140207
  Receipt Date: 20140207
  Transmission Date: 20141002
  Serious: Yes (Death)
  Sender: FDA-Public Use
  Company Number: CA-ASTRAZENECA-2014SE08021

PATIENT
  Age: 54 Year
  Sex: Male
  Weight: 47 kg

DRUGS (6)
  1. XYLOCAINE [Suspect]
     Route: 065
  2. HYDROCORTISONE [Suspect]
     Route: 065
  3. SALINE [Suspect]
     Route: 065
  4. GLYCERIN [Suspect]
     Route: 065
  5. NYSTATIN [Suspect]
     Dosage: 100000UNIT/ML USP, 15 ML, EVERY SIX HOUR
     Route: 048
  6. PSYCH MEDS [Concomitant]
     Dosage: EVERY HOURS

REACTIONS (1)
  - Gastrointestinal haemorrhage [Fatal]
